FAERS Safety Report 9144189 (Version 2)
Quarter: 2013Q2

REPORT INFORMATION
  Report Type: Spontaneous
  Country: DE (occurrence: DE)
  Receive Date: 20130306
  Receipt Date: 20130425
  Transmission Date: 20140414
  Serious: Yes (Other)
  Sender: FDA-Public Use
  Company Number: DE-ALEXION PHARMACEUTICALS INC.-A201300373

PATIENT
  Age: 2 Year
  Sex: Male
  Weight: 12.2 kg

DRUGS (16)
  1. SOLIRIS 300MG [Suspect]
     Indication: HAEMOLYTIC URAEMIC SYNDROME
     Dosage: 300 MG, Q2W
     Route: 042
     Dates: start: 20120702
  2. HYDROCHLOROTHIAZIDE [Concomitant]
     Dosage: 12.5 MG, BID
     Route: 048
  3. SODIUM BICARBONATE 8.4% [Concomitant]
     Dosage: 7 ML, TID
     Route: 048
  4. ALFACALCIDOL [Concomitant]
     Dosage: 0.2 ?G, QD
     Route: 048
  5. AMLODIPINE [Concomitant]
     Dosage: 2.5 MG, QD
     Route: 048
  6. RAMIPRIL [Concomitant]
     Dosage: 1.25 MG, QD
     Route: 048
  7. METOPROLOL [Concomitant]
     Dosage: 11.87 MG, BID
     Route: 048
  8. DIHYDRALAZINE SULFATE [Concomitant]
     Dosage: 25 MG, BID
     Route: 048
  9. DIHYDRALAZINE SULFATE [Concomitant]
     Dosage: 12.5 MG, QD
     Route: 048
  10. CLONIDINE [Concomitant]
     Dosage: 56.25 MG, BID
     Route: 048
  11. CLONIDINE [Concomitant]
     Dosage: 75 MG, QD
     Route: 048
  12. COLECALCIFEROL [Concomitant]
     Dosage: 1000 IU, QD
     Route: 048
  13. DARBEPOETIN ALFA [Concomitant]
     Dosage: 20 ?G, Q2W
  14. FUROSEMIDE [Concomitant]
     Dosage: 0.5 ML, BID
     Route: 048
  15. VALSARTAN [Concomitant]
     Dosage: 7 ML, QD
     Route: 048
  16. SODIUM CHLORIDE [Concomitant]
     Dosage: 5 ML, TID
     Route: 048

REACTIONS (1)
  - Urticaria [Recovered/Resolved]
